FAERS Safety Report 8185259-X (Version None)
Quarter: 2012Q1

REPORT INFORMATION
  Report Type: 
  Country: None (occurrence: None)
  Receive Date: 20120305
  Receipt Date: 20120223
  Transmission Date: 20120608
  Serious: Yes (Hospitalization, Other)
  Sender: FDA-Public Use
  Company Number: PHHY2011CA09140

PATIENT
  Sex: Female

DRUGS (8)
  1. SANDOSTATIN LAR [Suspect]
     Dosage: 20 MG, QMO
     Route: 030
  2. SANDOSTATIN LAR [Suspect]
     Dosage: 20 MG, EVERY 4 WEEKS
     Route: 030
  3. SANDOSTATIN [Suspect]
     Indication: METASTATIC CARCINOID TUMOUR
     Route: 058
     Dates: start: 20110120, end: 20110123
  4. SANDOSTATIN LAR [Suspect]
     Indication: METASTATIC CARCINOID TUMOUR
     Dosage: 20 MG, EVERY 4 WEEKS
     Route: 030
     Dates: start: 20110124
  5. DEXAMETHASONE [Concomitant]
  6. DILAUDID [Concomitant]
  7. SANDOSTATIN LAR [Suspect]
     Dosage: 20 MG, QMO
     Route: 030
  8. FENTANYL [Concomitant]

REACTIONS (17)
  - LACERATION [None]
  - OEDEMA [None]
  - FALL [None]
  - GAIT DISTURBANCE [None]
  - ABDOMINAL PAIN [None]
  - NEOPLASM MALIGNANT [None]
  - INJECTION SITE PAIN [None]
  - ASTHENIA [None]
  - RENAL DISORDER [None]
  - PAIN [None]
  - DEHYDRATION [None]
  - DYSGEUSIA [None]
  - BREAKTHROUGH PAIN [None]
  - SPINAL COMPRESSION FRACTURE [None]
  - BLOOD PRESSURE INCREASED [None]
  - MALAISE [None]
  - BACK PAIN [None]
